FAERS Safety Report 18569630 (Version 1)
Quarter: 2020Q4

REPORT INFORMATION
  Report Type: Spontaneous
  Country: US (occurrence: US)
  Receive Date: 20201201
  Receipt Date: 20201201
  Transmission Date: 20210114
  Serious: Yes (Hospitalization)
  Sender: FDA-Public Use
  Company Number: None

PATIENT
  Sex: Female

DRUGS (2)
  1. OCTREOTIDE 1ML ML SDV [Suspect]
     Active Substance: OCTREOTIDE ACETATE
     Indication: ESSENTIAL THROMBOCYTHAEMIA
     Dosage: ?          OTHER STRENGTH:100MCG/ML;?
     Route: 058
     Dates: start: 20201127
  2. OCTREOTIDE 1ML ML SDV [Suspect]
     Active Substance: OCTREOTIDE ACETATE
     Indication: GASTROINTESTINAL VASCULAR MALFORMATION HAEMORRHAGIC
     Dosage: ?          OTHER STRENGTH:100MCG/ML;?
     Route: 058
     Dates: start: 20201127

REACTIONS (1)
  - Product distribution issue [None]
